FAERS Safety Report 4655622-X (Version None)
Quarter: 2005Q2

REPORT INFORMATION
  Report Type: 
  Country: None (occurrence: None)
  Receive Date: 20050505
  Receipt Date: 20050420
  Transmission Date: 20051028
  Serious: Yes (Other)
  Sender: FDA-Public Use
  Company Number: USA050496158

PATIENT
  Age: 83 Year
  Sex: Male

DRUGS (6)
  1. HUMULIN N [Suspect]
  2. HUMULIN R [Suspect]
  3. HUMALOG [Suspect]
  4. LISINOPRIL [Concomitant]
  5. LANTUS [Concomitant]
  6. LOPID [Concomitant]

REACTIONS (5)
  - BLOOD GLUCOSE INCREASED [None]
  - DRUG EFFECT DECREASED [None]
  - HIP FRACTURE [None]
  - PHARMACEUTICAL PRODUCT COMPLAINT [None]
  - PROSTATE CANCER [None]
